FAERS Safety Report 10058329 (Version 1)
Quarter: 2014Q2

REPORT INFORMATION
  Report Type: Spontaneous
  Country: US (occurrence: None)
  Receive Date: 20140403
  Receipt Date: 20140403
  Transmission Date: 20141212
  Serious: Yes (Disabling)
  Sender: FDA-Public Use
  Company Number: None

PATIENT
  Age: 40 Year
  Sex: Male
  Weight: 110.68 kg

DRUGS (3)
  1. INTELENCE [Suspect]
     Indication: HIV INFECTION
     Dosage: 200 MG, 2 PILLS DAILY TWICE,  TWICE DAILY, EITHER USUALLY VARIES
     Dates: end: 20140315
  2. ERZICON [Concomitant]
  3. ACYCLOVR [Concomitant]

REACTIONS (10)
  - Abscess [None]
  - Drug intolerance [None]
  - Skin odour abnormal [None]
  - Flatulence [None]
  - Product odour abnormal [None]
  - Skin odour abnormal [None]
  - Product quality issue [None]
  - Malaise [None]
  - Quality of life decreased [None]
  - Sleep disorder [None]
